FAERS Safety Report 5804635-0 (Version None)
Quarter: 2008Q3

REPORT INFORMATION
  Report Type: 
  Country: None (occurrence: None)
  Receive Date: 20080709
  Receipt Date: 20080624
  Transmission Date: 20090109
  Serious: Yes (Hospitalization)
  Sender: FDA-Public Use
  Company Number: DE-ELI_LILLY_AND_COMPANY-DE200806006052

PATIENT
  Sex: Female

DRUGS (3)
  1. GEMZAR [Suspect]
     Indication: PANCREATIC CARCINOMA
     Dosage: 1000 MG/M2, UNKNOWN
     Route: 042
     Dates: start: 20080201
  2. CISPLATIN [Concomitant]
     Dosage: UNK, UNKNOWN
     Route: 065
  3. ANEMET [Concomitant]
     Dosage: UNK, UNKNOWN
     Route: 065

REACTIONS (6)
  - ASCITES [None]
  - FLUID RETENTION [None]
  - GENERALISED OEDEMA [None]
  - HYPOKALAEMIA [None]
  - HYPONATRAEMIA [None]
  - PERICARDIAL EFFUSION [None]
